FAERS Safety Report 6310341-9 (Version None)
Quarter: 2009Q3

REPORT INFORMATION
  Report Type: 
  Country: None (occurrence: None)
  Receive Date: 20090814
  Receipt Date: 20090812
  Transmission Date: 20100115
  Serious: Yes (Death, Other)
  Sender: FDA-Public Use
  Company Number: PHEH2008US11561

PATIENT
  Sex: Female

DRUGS (6)
  1. GLEEVEC [Suspect]
     Indication: CHRONIC MYELOID LEUKAEMIA
     Dosage: 300 MG/DAY
     Route: 048
     Dates: start: 20071201
  2. BETA BLOCKING AGENTS [Concomitant]
     Indication: ARRHYTHMIA
  3. PHENOTHIAZINE [Concomitant]
  4. SINEMET CR [Concomitant]
     Indication: PARKINSON'S DISEASE
     Dosage: UNK, UNK
  5. IMDUR [Concomitant]
     Indication: CARDIAC FAILURE CONGESTIVE
     Dosage: UNK, UNK
  6. METOPROLOL [Concomitant]
     Indication: CARDIAC FAILURE CONGESTIVE
     Dosage: UNK, UNK

REACTIONS (5)
  - CONFUSIONAL STATE [None]
  - DEATH [None]
  - FAILURE TO THRIVE [None]
  - FALL [None]
  - HALLUCINATION [None]
